FAERS Safety Report 8868938 (Version 1)
Quarter: 2012Q4

REPORT INFORMATION
  Report Type: 
  Country: US (occurrence: US)
  Receive Date: 20121023
  Receipt Date: 20121023
  Transmission Date: 20130627
  Serious: No
  Sender: FDA-Public Use
  Company Number: US-AMGEN-USASP2012054600

PATIENT
  Age: 56 Year
  Sex: Female
  Weight: 63.49 kg

DRUGS (7)
  1. ENBREL [Suspect]
     Indication: RHEUMATOID ARTHRITIS
     Dosage: 50 mg, qwk
     Route: 058
  2. ORENCIA [Concomitant]
     Dosage: 125mg/ML
     Route: 058
  3. PREDNISONE [Concomitant]
     Dosage: 10 mg, UNK
     Route: 048
  4. METHOTREXATE [Concomitant]
     Dosage: 2.5 mg, UNK
     Route: 048
  5. VITAMIN D /00107901/ [Concomitant]
     Dosage: 50000 unit, UNK
     Route: 048
  6. MULTI [Concomitant]
     Dosage: UNK
     Route: 048
  7. FOLIC ACID [Concomitant]
     Dosage: UNK
     Route: 048

REACTIONS (1)
  - Drug ineffective [Unknown]
